FAERS Safety Report 15268272 (Version 1)
Quarter: 2018Q3

REPORT INFORMATION
  Report Type: Spontaneous
  Country: US (occurrence: US)
  Receive Date: 20180725
  Receipt Date: 20180725
  Transmission Date: 20181010
  Serious: Yes (Hospitalization)
  Sender: FDA-Public Use
  Company Number: None

PATIENT
  Age: 60 Year
  Sex: Female
  Weight: 66.6 kg

DRUGS (2)
  1. PAZOPANIB (GW786034) [Suspect]
     Active Substance: PAZOPANIB
     Dates: end: 20180706
  2. ENOXAPRIN [Concomitant]

REACTIONS (3)
  - Vaginal haemorrhage [None]
  - Pain [None]
  - Haemoglobin decreased [None]

NARRATIVE: CASE EVENT DATE: 20180721
